FAERS Safety Report 6406704-3 (Version None)
Quarter: 2009Q4

REPORT INFORMATION
  Report Type: 
  Country: None (occurrence: None)
  Receive Date: 20091020
  Receipt Date: 20090903
  Transmission Date: 20100525
  Serious: Yes (Other)
  Sender: FDA-Public Use
  Company Number: CZ-BAXTER-2009BH013657

PATIENT
  Age: 4 Year
  Sex: Female

DRUGS (6)
  1. GAMMAGARD LIQUID [Suspect]
     Indication: HYPOGLOBULINAEMIA
     Dosage: FROM 16.30 TO 17.300,7 G/ KG - 12 G - 120 ML
     Dates: start: 20090821, end: 20090821
  2. GAMMAGARD LIQUID [Suspect]
     Dosage: FROM 16.30 TO 17.300,7 G/ KG - 12 G - 120 ML
     Dates: start: 20090821, end: 20090821
  3. MEDROL [Concomitant]
  4. POTASSIUM CHLORIDE [Concomitant]
  5. FUROSEMIDE [Concomitant]
  6. FRAXIPARIN [Concomitant]

REACTIONS (6)
  - CHILLS [None]
  - CYANOSIS [None]
  - HYPERTENSION [None]
  - RESTLESSNESS [None]
  - TACHYPNOEA [None]
  - VOMITING [None]
